FAERS Safety Report 6275554-3 (Version None)
Quarter: 2009Q3

REPORT INFORMATION
  Report Type: 
  Country: None (occurrence: None)
  Receive Date: 20090721
  Receipt Date: 20090709
  Transmission Date: 20100115
  Serious: Yes (Hospitalization, Disabling, Other)
  Sender: FDA-Public Use
  Company Number: CH-ELI_LILLY_AND_COMPANY-CH200907001904

PATIENT
  Age: 77 Year
  Sex: Male

DRUGS (5)
  1. ZYPREXA [Suspect]
     Indication: BIPOLAR DISORDER
     Dosage: 10 MG, EACH EVENING
     Dates: end: 20081115
  2. DILATREND [Concomitant]
     Indication: ESSENTIAL HYPERTENSION
     Dosage: 25 MG, EACH MORNING
     Dates: end: 20081101
  3. DILATREND [Concomitant]
     Dosage: 25 MG, 2/D
     Dates: start: 20081101
  4. IMOVANE [Concomitant]
     Indication: SLEEP DISORDER
     Dosage: 7.5 MG, EACH EVENING
     Dates: end: 20081115
  5. PLENDIL [Concomitant]
     Dosage: 10 MG, EACH MORNING
     Route: 048

REACTIONS (2)
  - CONVULSION [None]
  - MANIA [None]
